FAERS Safety Report 13432136 (Version 2)
Quarter: 2017Q2

REPORT INFORMATION
  Report Type: Spontaneous
  Country: US (occurrence: US)
  Receive Date: 20170412
  Receipt Date: 20170427
  Transmission Date: 20170830
  Serious: Yes (Hospitalization, Other)
  Sender: FDA-Public Use
  Company Number: US-JNJFOC-20170317326

PATIENT
  Age: 40 Year
  Sex: Female

DRUGS (1)
  1. XARELTO [Suspect]
     Active Substance: RIVAROXABAN
     Indication: DEEP VEIN THROMBOSIS
     Route: 048
     Dates: start: 20141107, end: 201411

REACTIONS (3)
  - Haemorrhage [Unknown]
  - Vaginal haemorrhage [Recovered/Resolved]
  - Adenocarcinoma of the cervix [Unknown]

NARRATIVE: CASE EVENT DATE: 201411
